FAERS Safety Report 5069216-8 (Version None)
Quarter: 2006Q3

REPORT INFORMATION
  Report Type: 
  Country: None (occurrence: None)
  Receive Date: 20060803
  Receipt Date: 20060509
  Transmission Date: 20061208
  Serious: Yes (Other)
  Sender: FDA-Public Use
  Company Number: PHEH2006US06199

PATIENT
  Age: 64 Year
  Sex: Female

DRUGS (9)
  1. HORMONAL CONTRACEPTIVES [Concomitant]
     Indication: HORMONE REPLACEMENT THERAPY
     Dates: start: 20030101
  2. ACTIVELLA [Concomitant]
  3. FOSAMAX [Concomitant]
  4. GLUCOSAMINE W/CHONDROITIN [Concomitant]
  5. ASCORBIC ACID [Concomitant]
  6. VITAMIN E [Concomitant]
  7. M.V.I. [Concomitant]
  8. PRILOSEC [Concomitant]
  9. ZELNORM [Suspect]
     Indication: IRRITABLE BOWEL SYNDROME
     Dosage: UNK, UNK
     Dates: start: 20040114, end: 20040206

REACTIONS (14)
  - ABDOMINAL DISCOMFORT [None]
  - ABDOMINAL DISTENSION [None]
  - ASCITES [None]
  - CHEMOTHERAPY [None]
  - CHEST DISCOMFORT [None]
  - CONSTIPATION [None]
  - DRUG INEFFECTIVE [None]
  - EATING DISORDER [None]
  - FLATULENCE [None]
  - GASTROOESOPHAGEAL REFLUX DISEASE [None]
  - HUNGER [None]
  - HYSTERECTOMY [None]
  - OVARIAN CANCER [None]
  - SURGICAL PROCEDURE REPEATED [None]
